FAERS Safety Report 19621870 (Version 3)
Quarter: 2021Q4

REPORT INFORMATION
  Report Type: Spontaneous
  Country: US (occurrence: US)
  Receive Date: 20210728
  Receipt Date: 20211005
  Transmission Date: 20220304
  Serious: No
  Sender: FDA-Public Use
  Company Number: NVSC2021US163322

PATIENT
  Age: 18 Year
  Sex: Male
  Weight: 89 kg

DRUGS (1)
  1. COSENTYX [Suspect]
     Active Substance: SECUKINUMAB
     Indication: Psoriasis
     Dosage: 300 MG/KG, QW
     Route: 058
     Dates: start: 20210515

REACTIONS (3)
  - Tinea infection [Unknown]
  - Rash [Unknown]
  - Body tinea [Unknown]

NARRATIVE: CASE EVENT DATE: 20210604
